FAERS Safety Report 10143742 (Version 2)
Quarter: 2014Q2

REPORT INFORMATION
  Report Type: Report from Study
  Country: TW (occurrence: TW)
  Receive Date: 20140430
  Receipt Date: 20140506
  Transmission Date: 20141212
  Serious: Yes (Death, Life-Threatening, Hospitalization)
  Sender: FDA-Public Use
  Company Number: TW-GLAXOSMITHKLINE-A1052905C

PATIENT
  Age: 28 Year
  Sex: Female
  Weight: 53 kg

DRUGS (6)
  1. BELIMUMAB [Suspect]
     Indication: SYSTEMIC LUPUS ERYTHEMATOSUS
     Dosage: 200MGML WEEKLY
     Route: 058
     Dates: start: 20130415
  2. PREDNISOLONE [Concomitant]
     Indication: SYSTEMIC LUPUS ERYTHEMATOSUS
     Dosage: 5MG PER DAY
     Route: 048
     Dates: start: 20140326
  3. IRON [Concomitant]
     Indication: ANAEMIA
     Dosage: 100MG PER DAY
     Route: 048
     Dates: start: 20140326
  4. CALCIUM CITRATE [Concomitant]
     Indication: OSTEOPOROSIS PROPHYLAXIS
     Dosage: 950MG PER DAY
     Route: 048
     Dates: start: 20140326
  5. BROWN MIXTURE [Concomitant]
     Indication: COUGH
     Route: 048
     Dates: start: 20140326
  6. MUCOSOLVAN [Concomitant]
     Indication: COUGH
     Dosage: 30MG THREE TIMES PER DAY
     Route: 048
     Dates: start: 20140326

REACTIONS (5)
  - Transient ischaemic attack [Recovered/Resolved]
  - Renal failure acute [Not Recovered/Not Resolved]
  - Pulmonary haemorrhage [Recovered/Resolved]
  - Urosepsis [Recovered/Resolved]
  - Pneumonia [Fatal]
